FAERS Safety Report 14821337 (Version 4)
Quarter: 2018Q3

REPORT INFORMATION
  Report Type: Report from Study
  Country: US (occurrence: US)
  Receive Date: 20180427
  Receipt Date: 20180710
  Transmission Date: 20181010
  Serious: Yes (Life-Threatening, Hospitalization, Disabling, Other)
  Sender: FDA-Public Use
  Company Number: US-TESARO, INC.-US-2018TSO01675

PATIENT

DRUGS (4)
  1. ZEJULA [Suspect]
     Active Substance: NIRAPARIB
     Indication: MALIGNANT PERITONEAL NEOPLASM
     Dosage: 300 MG, QD
     Route: 048
     Dates: start: 20180328
  2. ZEJULA [Suspect]
     Active Substance: NIRAPARIB
     Indication: METASTASIS
  3. ZEJULA [Suspect]
     Active Substance: NIRAPARIB
     Indication: RETROPERITONEAL CANCER
     Dosage: 300 MG, QD
     Route: 048
     Dates: end: 20180430
  4. ZEJULA [Suspect]
     Active Substance: NIRAPARIB
     Indication: OVARIAN CANCER
     Dosage: 200 MG, QD
     Route: 048

REACTIONS (19)
  - Decreased appetite [Unknown]
  - Weight decreased [Not Recovered/Not Resolved]
  - Vomiting [Unknown]
  - Abdominal pain [Not Recovered/Not Resolved]
  - Dehydration [Unknown]
  - Intestinal obstruction [Not Recovered/Not Resolved]
  - Feeling abnormal [Recovering/Resolving]
  - Malaise [Recovering/Resolving]
  - Nasopharyngitis [Recovered/Resolved]
  - Neoplasm malignant [Not Recovered/Not Resolved]
  - Blood creatinine increased [Unknown]
  - Nausea [Unknown]
  - Renal failure [Not Recovered/Not Resolved]
  - Blood pressure increased [Unknown]
  - Haematocrit decreased [Unknown]
  - Unevaluable event [Recovered/Resolved]
  - Red blood cell count decreased [Unknown]
  - White blood cells urine positive [Unknown]
  - Product use complaint [Not Recovered/Not Resolved]
